FAERS Safety Report 6910756-1 (Version None)
Quarter: 2010Q3

REPORT INFORMATION
  Report Type: 
  Country: None (occurrence: None)
  Receive Date: 20100806
  Receipt Date: 20100729
  Transmission Date: 20110219
  Serious: Yes (Hospitalization, Disabling, Other)
  Sender: FDA-Public Use
  Company Number: US-PFIZER INC-2010042257

PATIENT
  Sex: Male

DRUGS (2)
  1. CHANTIX [Suspect]
     Indication: SMOKING CESSATION THERAPY
     Dosage: UNK
     Dates: start: 20071210, end: 20080324
  2. PREDNISONE [Concomitant]
     Indication: MUSCLE SPASMS
     Dosage: UNK
     Dates: start: 20050101, end: 20080101

REACTIONS (14)
  - AFFECTIVE DISORDER [None]
  - AGORAPHOBIA [None]
  - ANXIETY DISORDER [None]
  - BIPOLAR DISORDER [None]
  - DEPRESSION [None]
  - HALLUCINATION [None]
  - MENTAL DISORDER [None]
  - PANIC ATTACK [None]
  - PARANOIA [None]
  - PHOBIA OF DRIVING [None]
  - PSYCHOTIC DISORDER [None]
  - SCHIZOAFFECTIVE DISORDER [None]
  - SUICIDAL IDEATION [None]
  - VERTIGO [None]
